FAERS Safety Report 4649731-9 (Version None)
Quarter: 2005Q2

REPORT INFORMATION
  Report Type: 
  Country: None (occurrence: None)
  Receive Date: 20050427
  Receipt Date: 20050415
  Transmission Date: 20051028
  Serious: Yes (Hospitalization)
  Sender: FDA-Public Use
  Company Number: 04P-056-0283866-00

PATIENT
  Age: 55 Year
  Sex: Female

DRUGS (10)
  1. VALPROATE SODIUM [Suspect]
     Indication: EPILEPSY
     Dosage: SEE IMAGE
     Route: 048
     Dates: start: 20030801, end: 20040101
  2. VALPROATE SODIUM [Suspect]
     Indication: EPILEPSY
     Dosage: SEE IMAGE
     Route: 048
     Dates: start: 20040101, end: 20041207
  3. HYDROCORTISONE [Concomitant]
  4. LEVOTHYROXINE SODIUM [Concomitant]
  5. HEPTAMINOL HYDROCHLORIDE [Concomitant]
  6. ENDOTELON [Concomitant]
  7. ALLOPURINOL [Concomitant]
  8. PHENYTOIN [Concomitant]
  9. LEVETIRACETAM [Concomitant]
  10. LAMOTRIGINE [Concomitant]

REACTIONS (11)
  - ACTIVATED PARTIAL THROMBOPLASTIN TIME PROLONGED [None]
  - APATHY [None]
  - BALANCE DISORDER [None]
  - CSF PROTEIN INCREASED [None]
  - CYTOLYTIC HEPATITIS [None]
  - HYPOTHERMIA [None]
  - METABOLIC ENCEPHALOPATHY [None]
  - NEUTROPENIA [None]
  - SOCIAL AVOIDANT BEHAVIOUR [None]
  - SOMNOLENCE [None]
  - THROMBOCYTOPENIA [None]
